FAERS Safety Report 23153649 (Version 1)
Quarter: 2023Q4

REPORT INFORMATION
  Report Type: Other
  Country: US (occurrence: None)
  Receive Date: 20231107
  Receipt Date: 20231107
  Transmission Date: 20240109
  Serious: Yes (Hospitalization)
  Sender: FDA-Public Use
  Company Number: US-ROCHE-3449838

PATIENT
  Age: 58 Year
  Sex: Female
  Weight: 83.99 kg

DRUGS (15)
  1. XOLAIR [Suspect]
     Active Substance: OMALIZUMAB
     Indication: Idiopathic urticaria
     Route: 058
     Dates: start: 2018, end: 202309
  2. XOLAIR [Suspect]
     Active Substance: OMALIZUMAB
  3. TRIAMCINOLONE ACETONIDE [Concomitant]
     Active Substance: TRIAMCINOLONE ACETONIDE
  4. DIAZEPAM [Concomitant]
     Active Substance: DIAZEPAM
  5. TALWIN [Concomitant]
     Active Substance: PENTAZOCINE LACTATE
  6. PROMETHAZINE [Concomitant]
     Active Substance: PROMETHAZINE HYDROCHLORIDE
  7. TIZANIDINE [Concomitant]
     Active Substance: TIZANIDINE
  8. TEMAZEPAM [Concomitant]
     Active Substance: TEMAZEPAM
  9. MELOXICAM [Concomitant]
     Active Substance: MELOXICAM
  10. FLUTICASONE [Concomitant]
     Active Substance: FLUTICASONE
  11. ALBUTEROL SULFATE [Concomitant]
     Active Substance: ALBUTEROL SULFATE
  12. EPIPEN [Concomitant]
     Active Substance: EPINEPHRINE
  13. OMEPRAZOLE [Concomitant]
     Active Substance: OMEPRAZOLE
  14. AUVI-Q [Concomitant]
     Active Substance: EPINEPHRINE
  15. BENADRYL [Concomitant]
     Active Substance: DIPHENHYDRAMINE HYDROCHLORIDE

REACTIONS (9)
  - Pain [Not Recovered/Not Resolved]
  - Headache [Not Recovered/Not Resolved]
  - Blood glucose increased [Unknown]
  - Asthma [Recovering/Resolving]
  - Urticaria [Not Recovered/Not Resolved]
  - Swelling [Unknown]
  - Respiratory disorder [Unknown]
  - Wheezing [Unknown]
  - Cough [Unknown]

NARRATIVE: CASE EVENT DATE: 20230401
